FAERS Safety Report 8428344-7 (Version None)
Quarter: 2012Q2

REPORT INFORMATION
  Report Type: 
  Country: None (occurrence: None)
  Receive Date: 20120612
  Receipt Date: 20120606
  Transmission Date: 20120825
  Serious: Yes (Hospitalization)
  Sender: FDA-Public Use
  Company Number: US-AMGEN-USASP2012035425

PATIENT
  Age: 44 Year
  Sex: Female

DRUGS (1)
  1. ENBREL [Suspect]
     Indication: RHEUMATOID ARTHRITIS
     Dosage: 50 MG, QWK
     Dates: start: 20090930, end: 20120516

REACTIONS (8)
  - INSOMNIA [None]
  - NASAL CONGESTION [None]
  - PYREXIA [None]
  - DYSPHAGIA [None]
  - RHEUMATOID ARTHRITIS [None]
  - COUGH [None]
  - FATIGUE [None]
  - POST PROCEDURAL HAEMORRHAGE [None]
